FAERS Safety Report 9466117 (Version 1)
Quarter: 2013Q3

REPORT INFORMATION
  Report Type: Spontaneous
  Country: GB (occurrence: GB)
  Receive Date: 20130820
  Receipt Date: 20130820
  Transmission Date: 20140515
  Serious: Yes (Hospitalization, Other)
  Sender: FDA-Public Use
  Company Number: GB-009507513-1308GBR006562

PATIENT
  Age: 34 Year
  Sex: Female

DRUGS (8)
  1. LORATADINE [Suspect]
     Indication: SEASONAL ALLERGY
     Dosage: 10 MG, UNK
     Route: 048
     Dates: start: 20130722, end: 20130725
  2. CARBAMAZEPINE [Concomitant]
     Dosage: 800 MG, BID
  3. CLOBAZAM [Concomitant]
  4. FUSIDIC ACID [Concomitant]
  5. LEVETIRACETAM [Concomitant]
     Dosage: 1 G, BID
  6. ACETAMINOPHEN [Concomitant]
  7. RISPERIDONE [Concomitant]
     Dosage: 1.5 MG, QD
  8. TOPIRAMATE [Concomitant]
     Dosage: 150 MG, BID

REACTIONS (2)
  - Convulsion [Recovered/Resolved with Sequelae]
  - Condition aggravated [Unknown]
